FAERS Safety Report 12250855 (Version 2)
Quarter: 2016Q2

REPORT INFORMATION
  Report Type: Report from Study
  Country: JP (occurrence: JP)
  Receive Date: 20160409
  Receipt Date: 20160429
  Transmission Date: 20160815
  Serious: No
  Sender: FDA-Public Use
  Company Number: JP-AMGEN-JPNCT2016044467

PATIENT
  Sex: Female
  Weight: 46.1 kg

DRUGS (4)
  1. PANITUMUMAB [Suspect]
     Active Substance: PANITUMUMAB
     Indication: RECTAL CANCER
     Dosage: 270 MG, Q2WK
     Route: 041
     Dates: start: 20160115
  2. 5-FU                               /00098801/ [Concomitant]
     Active Substance: FLUOROURACIL
     Indication: RECTAL CANCER
     Dosage: 3360 MG, Q2WEEKS
     Route: 042
     Dates: start: 20160115
  3. OXALIPLATIN. [Concomitant]
     Active Substance: OXALIPLATIN
     Indication: RECTAL CANCER
     Dosage: 110 MG, Q2WEEKS
     Route: 041
     Dates: start: 20160115
  4. CALCIUM LEVOFOLINATE [Concomitant]
     Active Substance: LEVOLEUCOVORIN CALCIUM
     Indication: RECTAL CANCER
     Dosage: 275 MG, Q2WEEKS
     Route: 041
     Dates: start: 20160115

REACTIONS (7)
  - Decreased appetite [Recovered/Resolved]
  - Stomatitis [Recovered/Resolved]
  - Dry skin [Unknown]
  - Nausea [Recovered/Resolved]
  - Dermatitis acneiform [Unknown]
  - Peripheral sensory neuropathy [Unknown]
  - Constipation [Recovered/Resolved]
